FAERS Safety Report 8855980 (Version 1)
Quarter: 2012Q4

REPORT INFORMATION
  Report Type: 
  Country: US (occurrence: US)
  Receive Date: 20121023
  Receipt Date: 20121023
  Transmission Date: 20130627
  Serious: No
  Sender: FDA-Public Use
  Company Number: US-AMGEN-USASP2012058480

PATIENT
  Age: 68 Year
  Sex: Female

DRUGS (1)
  1. ENBREL [Suspect]
     Indication: RHEUMATOID ARTHRITIS
     Dosage: 50 mg, qwk
     Route: 058
     Dates: start: 20120104, end: 20120829

REACTIONS (10)
  - Headache [Recovered/Resolved]
  - Nervousness [Recovered/Resolved]
  - Anxiety [Recovered/Resolved]
  - Palpitations [Recovered/Resolved]
  - Sneezing [Recovered/Resolved]
  - Wound [Not Recovered/Not Resolved]
  - Dysuria [Recovered/Resolved]
  - Injury [Not Recovered/Not Resolved]
  - Sinus disorder [Recovered/Resolved]
  - Nasal congestion [Recovered/Resolved]
